FAERS Safety Report 4972131-9 (Version None)
Quarter: 2006Q2

REPORT INFORMATION
  Report Type: 
  Country: None (occurrence: None)
  Receive Date: 20060413
  Receipt Date: 20060404
  Transmission Date: 20061013
  Serious: Yes (Hospitalization)
  Sender: FDA-Public Use
  Company Number: FR-JNJFOC-20060402471

PATIENT
  Sex: Male

DRUGS (4)
  1. TOPALGIC [Suspect]
     Indication: TOOTHACHE
     Route: 048
  2. CORTISONE ACETATE TAB [Concomitant]
     Indication: FASCIITIS
     Route: 048
  3. RODOGYL [Concomitant]
     Route: 048
  4. RODOGYL [Concomitant]
     Indication: TOOTH EXTRACTION
     Route: 048

REACTIONS (3)
  - DRUG DISPENSING ERROR [None]
  - HOT FLUSH [None]
  - VERTIGO [None]
